FAERS Safety Report 16879960 (Version 2)
Quarter: 2019Q4

REPORT INFORMATION
  Report Type: Spontaneous
  Country: US (occurrence: US)
  Receive Date: 20191003
  Receipt Date: 20191114
  Transmission Date: 20200122
  Serious: No
  Sender: FDA-Public Use
  Company Number: US-ASTRAZENECA-2019SF26586

PATIENT
  Age: 4013 Week
  Sex: Female
  Weight: 77.1 kg

DRUGS (1)
  1. BYDUREON [Suspect]
     Active Substance: EXENATIDE
     Indication: TYPE 2 DIABETES MELLITUS
     Route: 058

REACTIONS (4)
  - Visual impairment [Not Recovered/Not Resolved]
  - Device issue [Unknown]
  - Weight decreased [Recovered/Resolved]
  - Glycosylated haemoglobin abnormal [Unknown]

NARRATIVE: CASE EVENT DATE: 201905
